FAERS Safety Report 7528278-6 (Version None)
Quarter: 2011Q2

REPORT INFORMATION
  Report Type: 
  Country: None (occurrence: None)
  Receive Date: 20110607
  Receipt Date: 20100528
  Transmission Date: 20111010
  Serious: No
  Sender: FDA-Public Use
  Company Number: US-ASTRAZENECA-2010SE24882

PATIENT
  Age: 42 Year
  Sex: Male

DRUGS (9)
  1. PRILOSEC [Suspect]
     Indication: GASTROOESOPHAGEAL REFLUX DISEASE
     Route: 048
  2. PRILOSEC [Suspect]
     Route: 048
  3. PRILOSEC [Suspect]
     Route: 048
  4. CARDIZEM CD [Concomitant]
  5. ATENOLOL [Concomitant]
  6. PRILOSEC [Suspect]
     Indication: EROSIVE OESOPHAGITIS
     Route: 048
  7. PRILOSEC [Suspect]
     Route: 048
  8. PRILOSEC [Suspect]
     Route: 048
  9. ENTERIC ASA [Concomitant]

REACTIONS (3)
  - SENSATION OF FOREIGN BODY [None]
  - EROSIVE OESOPHAGITIS [None]
  - DRUG INEFFECTIVE [None]
